FAERS Safety Report 9780640 (Version 1)
Quarter: 2013Q4

REPORT INFORMATION
  Report Type: Spontaneous
  Country: IT (occurrence: IT)
  Receive Date: 20131224
  Receipt Date: 20131224
  Transmission Date: 20140711
  Serious: Yes (Other)
  Sender: FDA-Public Use
  Company Number: IT-JNJFOC-20131210920

PATIENT
  Age: 34 Year
  Sex: Female
  Weight: 125 kg

DRUGS (1)
  1. RISPERDAL [Suspect]
     Indication: PRODUCT USED FOR UNKNOWN INDICATION
     Route: 048
     Dates: start: 20131216, end: 20131216

REACTIONS (3)
  - Self injurious behaviour [Unknown]
  - Tachycardia [Unknown]
  - Sopor [Unknown]
